FAERS Safety Report 18019547 (Version 1)
Quarter: 2020Q3

REPORT INFORMATION
  Report Type: Spontaneous
  Country: US (occurrence: US)
  Receive Date: 20200714
  Receipt Date: 20200714
  Transmission Date: 20201103
  Serious: Yes (Life-Threatening)
  Sender: FDA-Public Use
  Company Number: None

PATIENT
  Age: 39 Year
  Sex: Male
  Weight: 134 kg

DRUGS (1)
  1. REMDESIVIR. [Suspect]
     Active Substance: REMDESIVIR
     Indication: COVID-19
     Dates: start: 20200630, end: 20200704

REACTIONS (10)
  - Cerebral haemorrhage [None]
  - Brain midline shift [None]
  - Creatinine renal clearance decreased [None]
  - Pupil fixed [None]
  - Brain oedema [None]
  - Unresponsive to stimuli [None]
  - Vomiting [None]
  - Brain death [None]
  - Blood creatinine increased [None]
  - Cardiac arrest [None]

NARRATIVE: CASE EVENT DATE: 20200713
